FAERS Safety Report 11406078 (Version 1)
Quarter: 2015Q3

REPORT INFORMATION
  Report Type: Report from Study
  Country: US (occurrence: US)
  Receive Date: 20150821
  Receipt Date: 20150821
  Transmission Date: 20151125
  Serious: Yes (Death, Other)
  Sender: FDA-Public Use
  Company Number: US-AMGEN-USASL2015085569

PATIENT
  Age: 81 Year
  Sex: Female

DRUGS (1)
  1. PROCRIT [Suspect]
     Active Substance: ERYTHROPOIETIN
     Indication: ANAEMIA
     Dosage: 40000 MUG, UNK
     Route: 065
     Dates: start: 20060119

REACTIONS (2)
  - Death [Fatal]
  - Drug dose omission [Recovered/Resolved]

NARRATIVE: CASE EVENT DATE: 2007
